FAERS Safety Report 13881250 (Version 1)
Quarter: 2017Q3

REPORT INFORMATION
  Report Type: Spontaneous
  Country: FR (occurrence: FR)
  Receive Date: 20170818
  Receipt Date: 20170818
  Transmission Date: 20171127
  Serious: Yes (Hospitalization)
  Sender: FDA-Public Use
  Company Number: FR-TEVA-796399ROM

PATIENT
  Age: 13 Year
  Sex: Female

DRUGS (3)
  1. VOGALENE [Suspect]
     Active Substance: METOPIMAZINE
     Route: 048
     Dates: start: 20170516, end: 20170518
  2. AMOXICILLINE BASE [Suspect]
     Active Substance: AMOXICILLIN
     Route: 048
     Dates: start: 20170518, end: 20170522
  3. SPASFON [Concomitant]
     Active Substance: PHLOROGLUCINOL\1,3,5-TRIMETHOXYBENZENE
     Route: 048
     Dates: start: 20170516, end: 20170522

REACTIONS (3)
  - Nephritis [Recovered/Resolved]
  - Acute kidney injury [Recovered/Resolved]
  - Hypersensitivity [Recovered/Resolved]

NARRATIVE: CASE EVENT DATE: 201705
